FAERS Safety Report 8221221-6 (Version None)
Quarter: 2012Q1

REPORT INFORMATION
  Report Type: 
  Country: None (occurrence: None)
  Receive Date: 20120320
  Receipt Date: 20120309
  Transmission Date: 20120608
  Serious: Yes (Hospitalization)
  Sender: FDA-Public Use
  Company Number: PHEH2012US006067

PATIENT
  Sex: Male

DRUGS (1)
  1. EXJADE [Suspect]
     Indication: SICKLE CELL ANAEMIA
     Dosage: 1000 MG, BID
     Route: 048
     Dates: start: 20090910

REACTIONS (6)
  - DYSARTHRIA [None]
  - BALANCE DISORDER [None]
  - CONFUSIONAL STATE [None]
  - SLEEP DISORDER [None]
  - HIP FRACTURE [None]
  - THINKING ABNORMAL [None]
